FAERS Safety Report 7037595-8 (Version None)
Quarter: 2010Q4

REPORT INFORMATION
  Report Type: 
  Country: None (occurrence: None)
  Receive Date: 20101011
  Receipt Date: 20100929
  Transmission Date: 20110411
  Serious: Yes (Other)
  Sender: FDA-Public Use
  Company Number: PHHY2010JP65056

PATIENT
  Age: 72 Year
  Sex: Male

DRUGS (1)
  1. TEGRETOL [Suspect]
     Indication: FACIAL PAIN
     Route: 048

REACTIONS (4)
  - ANAL HAEMORRHAGE [None]
  - DRUG ERUPTION [None]
  - ECZEMA [None]
  - PRURITUS [None]
